FAERS Safety Report 19638729 (Version 2)
Quarter: 2021Q3

REPORT INFORMATION
  Report Type: Report from Study
  Country: None (occurrence: CO)
  Receive Date: 20210730
  Receipt Date: 20210830
  Transmission Date: 20211014
  Serious: Yes (Hospitalization)
  Sender: FDA-Public Use
  Company Number: CO-ABBVIE-21K-036-4015653-00

PATIENT
  Age: 67 Year
  Sex: Male
  Weight: 51 kg

DRUGS (2)
  1. ZEMPLAR [Suspect]
     Active Substance: PARICALCITOL
     Indication: HYPERPARATHYROIDISM SECONDARY
     Dosage: POST DIALYSIS
     Route: 042
     Dates: start: 20190221, end: 20210807
  2. ZEMPLAR [Suspect]
     Active Substance: PARICALCITOL
     Indication: CHRONIC KIDNEY DISEASE

REACTIONS (4)
  - Dyspnoea [Recovering/Resolving]
  - Respiratory distress [Unknown]
  - Ascites [Recovering/Resolving]
  - Gastritis [Recovering/Resolving]

NARRATIVE: CASE EVENT DATE: 20210719
